FAERS Safety Report 15937718 (Version 1)
Quarter: 2019Q1

REPORT INFORMATION
  Report Type: Spontaneous
  Country: US (occurrence: US)
  Receive Date: 20190208
  Receipt Date: 20190208
  Transmission Date: 20190417
  Serious: Yes (Hospitalization)
  Sender: FDA-Public Use
  Company Number: None

PATIENT
  Age: 70 Year
  Sex: Female

DRUGS (7)
  1. GLIPIZIDE. [Concomitant]
     Active Substance: GLIPIZIDE
  2. HUMIRA [Suspect]
     Active Substance: ADALIMUMAB
     Indication: PSORIATIC ARTHROPATHY
     Dosage: ?          OTHER FREQUENCY:EVERY 2 WEEKS;?
     Route: 058
     Dates: start: 20181001, end: 20190115
  3. LANTUS [Concomitant]
     Active Substance: INSULIN GLARGINE
  4. VICTOZA [Concomitant]
     Active Substance: LIRAGLUTIDE
  5. HUMALOG [Concomitant]
     Active Substance: INSULIN LISPRO
  6. FOLIC ACID. [Concomitant]
     Active Substance: FOLIC ACID
  7. FLUOXETINE [Concomitant]
     Active Substance: FLUOXETINE HYDROCHLORIDE

REACTIONS (1)
  - Chronic hepatic failure [None]

NARRATIVE: CASE EVENT DATE: 20190208
